FAERS Safety Report 7109994-7 (Version None)
Quarter: 2010Q4

REPORT INFORMATION
  Report Type: 
  Country: None (occurrence: None)
  Receive Date: 20101118
  Receipt Date: 20101108
  Transmission Date: 20110411
  Serious: Yes (Other)
  Sender: FDA-Public Use
  Company Number: CA-BAYER-201040178NA

PATIENT
  Age: 35 Year
  Sex: Female

DRUGS (1)
  1. MIRENA [Suspect]
     Indication: MENSTRUAL CYCLE MANAGEMENT
     Dosage: FREQUENCY : CONTINUOUS
     Route: 015
     Dates: start: 20090101

REACTIONS (13)
  - ARTHRALGIA [None]
  - COMMUNICATION DISORDER [None]
  - CONTACT LENS INTOLERANCE [None]
  - CONTUSION [None]
  - DELUSION [None]
  - DEPRESSION [None]
  - DISSOCIATION [None]
  - INDIFFERENCE [None]
  - PARANOIA [None]
  - PELVIC DISCOMFORT [None]
  - PERSONALITY CHANGE [None]
  - URINARY TRACT INFECTION [None]
  - WEIGHT DECREASED [None]
